FAERS Safety Report 24241371 (Version 3)
Quarter: 2024Q4

REPORT INFORMATION
  Report Type: Report from Study
  Country: BG (occurrence: BG)
  Receive Date: 20240823
  Receipt Date: 20241001
  Transmission Date: 20250114
  Serious: Yes (Other)
  Sender: TAKEDA
  Company Number: BG-TAKEDA-2023TUS107945

PATIENT
  Age: 22 Year
  Sex: Female
  Weight: 60 kg

DRUGS (3)
  1. VEDOLIZUMAB [Suspect]
     Active Substance: VEDOLIZUMAB
     Indication: Crohn^s disease
     Dosage: 300 MILLIGRAM
     Route: 042
     Dates: start: 20210601
  2. FOLIC ACID [Concomitant]
     Active Substance: FOLIC ACID
     Indication: Pregnancy
     Dosage: UNK
     Route: 048
     Dates: start: 20240802
  3. DUPHASTON [Concomitant]
     Active Substance: DYDROGESTERONE
     Indication: Pregnancy
     Dosage: UNK
     Route: 048
     Dates: start: 20240802

REACTIONS (6)
  - Abortion spontaneous [Unknown]
  - Swelling [Unknown]
  - Weight increased [Unknown]
  - Body temperature increased [Unknown]
  - Renal pain [Unknown]
  - Pregnancy [Unknown]

NARRATIVE: CASE EVENT DATE: 20210601
